FAERS Safety Report 18101503 (Version 1)
Quarter: 2020Q3

REPORT INFORMATION
  Report Type: Spontaneous
  Country: US (occurrence: US)
  Receive Date: 20200801
  Receipt Date: 20200801
  Transmission Date: 20201103
  Serious: Yes (Other)
  Sender: FDA-Public Use
  Company Number: US-TEVA-2020-US-1808038

PATIENT
  Sex: Female

DRUGS (6)
  1. SUBOXONE [Suspect]
     Active Substance: BUPRENORPHINE HYDROCHLORIDE\NALOXONE HYDROCHLORIDE
     Route: 065
  2. TRAMADOL. [Suspect]
     Active Substance: TRAMADOL
     Route: 065
  3. LORTAB [Suspect]
     Active Substance: ACETAMINOPHEN\HYDROCODONE BITARTRATE
     Route: 065
  4. HYDROCODONE [Suspect]
     Active Substance: HYDROCODONE
     Route: 065
  5. OXYCODONE [Suspect]
     Active Substance: OXYCODONE
     Route: 065
  6. MS CONTIN [Suspect]
     Active Substance: MORPHINE SULFATE
     Route: 065

REACTIONS (7)
  - Hyperhidrosis [Unknown]
  - Vomiting [Unknown]
  - Bedridden [Unknown]
  - Feeling abnormal [Unknown]
  - Drug dependence [Unknown]
  - Eating disorder [Unknown]
  - Withdrawal syndrome [Unknown]
